FAERS Safety Report 9701257 (Version 3)
Quarter: 2015Q3

REPORT INFORMATION
  Report Type: Spontaneous
  Country: US (occurrence: US)
  Receive Date: 20131121
  Receipt Date: 20150803
  Transmission Date: 20151125
  Serious: No
  Sender: FDA-Public Use
  Company Number: US-GILEAD-2008-0016085

PATIENT
  Age: 74 Year
  Sex: Female
  Weight: 86.18 kg

DRUGS (19)
  1. LETAIRIS [Suspect]
     Active Substance: AMBRISENTAN
     Indication: PULMONARY ARTERIAL HYPERTENSION
     Route: 048
     Dates: start: 20080317
  2. CYMBALTA [Concomitant]
     Active Substance: DULOXETINE HYDROCHLORIDE
     Route: 048
  3. LASIX [Concomitant]
     Active Substance: FUROSEMIDE
     Route: 048
  4. VITAMIN B12 [Concomitant]
     Active Substance: CYANOCOBALAMIN
     Route: 048
  5. OMNIPRED [Concomitant]
     Active Substance: PREDNISOLONE ACETATE
  6. ALBUTEROL. [Concomitant]
     Active Substance: ALBUTEROL
     Route: 048
  7. DAILY MULTIVITAMIN [Concomitant]
     Active Substance: VITAMINS
     Route: 048
  8. LIPITOR [Concomitant]
     Active Substance: ATORVASTATIN CALCIUM
     Route: 048
  9. VIGAMOX [Concomitant]
     Active Substance: MOXIFLOXACIN HYDROCHLORIDE
  10. DIGOXIN. [Concomitant]
     Active Substance: DIGOXIN
     Route: 048
  11. NEXIUM [Concomitant]
     Active Substance: ESOMEPRAZOLE MAGNESIUM
     Route: 048
  12. DITROPAN [Concomitant]
     Active Substance: OXYBUTYNIN CHLORIDE
     Route: 048
  13. VASOTEC [Concomitant]
     Active Substance: ENALAPRIL MALEATE
     Route: 048
  14. GLUCOTROL [Concomitant]
     Active Substance: GLIPIZIDE
     Route: 048
  15. SYNTHROID [Concomitant]
     Active Substance: LEVOTHYROXINE SODIUM
     Route: 048
  16. IMDUR [Concomitant]
     Active Substance: ISOSORBIDE MONONITRATE
     Route: 048
  17. NEVANAC [Concomitant]
     Active Substance: NEPAFENAC
     Route: 048
  18. ATENOLOL. [Concomitant]
     Active Substance: ATENOLOL
     Route: 048
  19. ASPIRIN. [Concomitant]
     Active Substance: ASPIRIN
     Route: 048

REACTIONS (7)
  - Chest pain [Unknown]
  - Headache [Unknown]
  - Chest discomfort [Unknown]
  - Neck pain [Unknown]
  - Painful respiration [Unknown]
  - Palpitations [Unknown]
  - Musculoskeletal pain [Unknown]

NARRATIVE: CASE EVENT DATE: 20080410
